FAERS Safety Report 13908842 (Version 1)
Quarter: 2017Q3

REPORT INFORMATION
  Report Type: Spontaneous
  Country: FR (occurrence: FR)
  Receive Date: 20170827
  Receipt Date: 20170827
  Transmission Date: 20171127
  Serious: Yes (Hospitalization)
  Sender: FDA-Public Use
  Company Number: FR-BAXTER-2017BAX030633

PATIENT
  Age: 66 Year
  Sex: Female

DRUGS (7)
  1. ONDANSETRON [Suspect]
     Active Substance: ONDANSETRON
     Indication: PRODUCT USED FOR UNKNOWN INDICATION
     Dosage: EVENING OF THE COURSE
     Route: 065
     Dates: start: 20170620
  2. FLUOROURACILE ACCORD [Suspect]
     Active Substance: FLUOROURACIL
     Indication: BREAST CANCER
     Dosage: FEC CHEMOTHERAPY PROTOCOL, FIRST COURSE
     Route: 042
     Dates: start: 20170620, end: 20170620
  3. SOLUPRED [Suspect]
     Active Substance: PREDNISOLONE
     Indication: PRODUCT USED FOR UNKNOWN INDICATION
     Dosage: STRENGTH : 40 UNIT NOT SPECIFIED, THE THREE FIRST DAYS
     Route: 065
     Dates: start: 20170620
  4. PRIMPERAN [Suspect]
     Active Substance: METOCLOPRAMIDE HYDROCHLORIDE
     Indication: PRODUCT USED FOR UNKNOWN INDICATION
     Dosage: FIRST THREE DAYS
     Route: 065
     Dates: start: 20170620
  5. EPIRUBICIN MEDAC [Suspect]
     Active Substance: EPIRUBICIN HYDROCHLORIDE
     Indication: BREAST CANCER
     Dosage: FEC CHEMOTHERAPY PROTOCOL, FIRST COURSE
     Route: 042
     Dates: start: 20170620, end: 20170620
  6. EMEND [Suspect]
     Active Substance: APREPITANT
     Indication: PRODUCT USED FOR UNKNOWN INDICATION
     Dosage: THE THREE FIRST DAYS
     Route: 065
     Dates: start: 20170620
  7. ENDOXAN 1000 MG, POUDRE POUR SOLUTION INJECTABLE [Suspect]
     Active Substance: CYCLOPHOSPHAMIDE
     Indication: BREAST CANCER
     Dosage: FEC CHEMOTHERAPY PROTOCOL, FIRST COURSE, POWDER FOR INFUSION
     Route: 042
     Dates: start: 20170620, end: 20170620

REACTIONS (2)
  - Delusion [Recovered/Resolved]
  - Conjunctivitis [Unknown]

NARRATIVE: CASE EVENT DATE: 201707
